FAERS Safety Report 5383148-7 (Version None)
Quarter: 2007Q3

REPORT INFORMATION
  Report Type: 
  Country: None (occurrence: None)
  Receive Date: 20070710
  Receipt Date: 20070702
  Transmission Date: 20080115
  Serious: Yes (Hospitalization, Other)
  Sender: FDA-Public Use
  Company Number: US-ELI_LILLY_AND_COMPANY-2005PV003544

PATIENT
  Age: 57 Year
  Sex: Female
  Weight: 94.35 kg

DRUGS (5)
  1. EXENATIDE [Suspect]
     Indication: TYPE 2 DIABETES MELLITUS
     Dosage: 10 UG, 2/D
     Route: 058
     Dates: start: 20051014
  2. EXENATIDE [Suspect]
     Dosage: 10 UG, 2/D
     Route: 058
     Dates: start: 20051014
  3. EXENATIDE [Suspect]
     Dosage: 5 UG, 2/D
     Route: 058
     Dates: start: 20051014, end: 20051114
  4. GLUCOPHAGE [Concomitant]
     Indication: TYPE 2 DIABETES MELLITUS
     Dosage: 1000 MG, 2/D
     Route: 048
  5. LANTUS [Concomitant]
     Indication: TYPE 2 DIABETES MELLITUS
     Dosage: 40 U, EACH EVENING
     Route: 058

REACTIONS (8)
  - BLOOD GLUCOSE DECREASED [None]
  - BREAST CANCER [None]
  - BREAST CANCER RECURRENT [None]
  - BREAST DISCHARGE [None]
  - DECREASED APPETITE [None]
  - DIVERTICULITIS [None]
  - ENERGY INCREASED [None]
  - HYPERHIDROSIS [None]
